FAERS Safety Report 6437856-7 (Version None)
Quarter: 2009Q4

REPORT INFORMATION
  Report Type: 
  Country: None (occurrence: None)
  Receive Date: 20091109
  Receipt Date: 20091023
  Transmission Date: 20100525
  Serious: Yes (Death, Life-Threatening, Other)
  Sender: FDA-Public Use
  Company Number: DAB-2009-00015

PATIENT
  Age: 52 Year
  Sex: Female

DRUGS (12)
  1. EPIRUBICIN HYDROCHLORIDE (EPIRUBICIN HYDROCHLORIDE) [Suspect]
     Indication: NEOPLASM MALIGNANT
     Dosage: 4 CYCLES
  2. CHEMOTHERAPY NOS (CHEMOTHERAPEUTICS NOS) [Suspect]
     Dosage: 8 TREATMENTS AT THREE WEEKLY INTERVALS
     Dates: start: 20080522
  3. CLOZAPRIL (CLOZAPINE) [Suspect]
     Indication: SCHIZOPHRENIA
     Dosage: 400 MG, 1 IN 1 DAYS, ORAL
     Route: 048
     Dates: start: 20030909, end: 20060828
  4. CLOZAPRIL (CLOZAPINE) [Suspect]
     Indication: SCHIZOPHRENIA
     Dosage: 400 MG, 1 IN 1 DAYS, ORAL
     Route: 048
     Dates: start: 20061009
  5. CYCLOPHOSPHAMIDE [Suspect]
     Indication: NEOPLASM MALIGNANT
     Dosage: 4 CYCLES
  6. DOCETAXEL [Suspect]
     Indication: NEOPLASM MALIGNANT
     Dosage: 4 CYCLES
  7. AMITRIPTYLINE HYDROCHLORIDE [Concomitant]
  8. ASACOL [Concomitant]
  9. CLONAZEPAM [Concomitant]
  10. ESCITALOPRAM [Concomitant]
  11. EZETIMIBE [Concomitant]
  12. METFORMIN HCL [Concomitant]

REACTIONS (3)
  - BREAST CANCER [None]
  - DIABETES MELLITUS [None]
  - LYMPHOCYTE COUNT DECREASED [None]
